FAERS Safety Report 4993535-4 (Version None)
Quarter: 2006Q2

REPORT INFORMATION
  Report Type: 
  Country: None (occurrence: None)
  Receive Date: 20060503
  Receipt Date: 20060503
  Transmission Date: 20061013
  Serious: Yes (Hospitalization)
  Sender: FDA-Public Use
  Company Number: None

PATIENT
  Age: 55 Year
  Sex: Male
  Weight: 60 kg

DRUGS (1)
  1. LORAZEPAM [Suspect]
     Indication: SEDATIVE THERAPY
     Dosage: UP TO 60MG/HOUR CONTINUOUS IV DRIP
     Route: 041
     Dates: start: 20051020, end: 20051024

REACTIONS (3)
  - CHEMICAL POISONING [None]
  - RENAL IMPAIRMENT [None]
  - THERAPEUTIC RESPONSE DECREASED [None]
